FAERS Safety Report 17021888 (Version 1)
Quarter: 2019Q4

REPORT INFORMATION
  Report Type: Spontaneous
  Country: US (occurrence: US)
  Receive Date: 20191008
  Receipt Date: 20191008
  Transmission Date: 20200122
  Serious: Yes (Hospitalization)
  Sender: FDA-Public Use
  Company Number: None

PATIENT
  Age: 72 Year
  Sex: Male

DRUGS (1)
  1. SUTENT [Suspect]
     Active Substance: SUNITINIB MALATE
     Route: 048
     Dates: start: 201909

REACTIONS (4)
  - Heart rate increased [None]
  - Cardiac ventricular disorder [None]
  - Gait disturbance [None]
  - Blood pressure increased [None]

NARRATIVE: CASE EVENT DATE: 20190928
